FAERS Safety Report 4350826-8 (Version None)
Quarter: 2004Q2

REPORT INFORMATION
  Report Type: 
  Country: None (occurrence: None)
  Receive Date: 20040430
  Receipt Date: 20040413
  Transmission Date: 20050107
  Serious: Yes (Other)
  Sender: FDA-Public Use
  Company Number: JP-BRISTOL-MYERS SQUIBB COMPANY-12563664

PATIENT
  Age: 85 Year
  Sex: Female

DRUGS (17)
  1. DAIVONEX OINTMENT [Suspect]
     Indication: PSORIASIS
     Dosage: DOSE VALUE: ALSO REPORTED AS 12 GRAM, 6 GR TWICE DAILY.
     Route: 061
     Dates: start: 20030403, end: 20020422
  2. CALCIUM LACTATE [Suspect]
     Indication: OSTEOPOROSIS
     Route: 048
     Dates: start: 20000101, end: 20020422
  3. LASIX [Suspect]
     Indication: CARDIOMEGALY
     Dosage: DOSE CHANGED TO 20 MG DAILY ON 13-APR-2002.
     Dates: end: 20020422
  4. LASIX [Suspect]
     Indication: OEDEMA
     Dosage: DOSE CHANGED TO 20 MG DAILY ON 13-APR-2002.
     Dates: end: 20020422
  5. SODIUM CHLORIDE [Concomitant]
  6. NORVASC [Concomitant]
     Dates: end: 20020426
  7. MINIPRESS [Concomitant]
     Dates: end: 20020426
  8. ZESULAN [Concomitant]
     Dates: end: 20020430
  9. ALESION [Concomitant]
     Dates: end: 20020507
  10. MEVALOTIN [Concomitant]
     Dates: end: 20020307
  11. UBRETID [Concomitant]
     Dates: end: 20020412
  12. CHLOMY-P [Concomitant]
     Dates: end: 20020405
  13. TIGASON [Concomitant]
     Dosage: DOSE DECR TO 30 MG ON 16-APR-2002, THEN DECR TO 20 MG ON 20-APR-2002.
     Dates: start: 20020409
  14. RINDERON [Concomitant]
     Dates: start: 20020411, end: 20020412
  15. LOCOID [Concomitant]
     Dates: end: 20020412
  16. NERISONE [Concomitant]
     Dates: end: 20020412
  17. ANTEBATE [Concomitant]
     Dates: start: 20020327

REACTIONS (3)
  - HYPERCALCAEMIA [None]
  - HYPERNATRAEMIA [None]
  - RENAL FAILURE ACUTE [None]
